FAERS Safety Report 11822167 (Version 2)
Quarter: 2016Q4

REPORT INFORMATION
  Report Type: Spontaneous
  Country: US (occurrence: US)
  Receive Date: 20151210
  Receipt Date: 20161017
  Transmission Date: 20170206
  Serious: No
  Sender: FDA-Public Use
  Company Number: US-JNJFOC-20150916794

PATIENT
  Age: 66 Year
  Sex: Female

DRUGS (11)
  1. ACTONEL [Concomitant]
     Active Substance: RISEDRONATE SODIUM
  2. IMBRUVICA [Suspect]
     Active Substance: IBRUTINIB
     Indication: B-CELL SMALL LYMPHOCYTIC LYMPHOMA
     Route: 048
     Dates: start: 201401
  3. BEANO [Concomitant]
     Active Substance: ASPERGILLUS NIGER .ALPHA.-GALACTOSIDASE
     Indication: DYSPEPSIA
  4. LOTEMAX [Concomitant]
     Active Substance: LOTEPREDNOL ETABONATE
  5. TRAMADOL. [Concomitant]
     Active Substance: TRAMADOL
  6. IMBRUVICA [Suspect]
     Active Substance: IBRUTINIB
     Indication: CHRONIC LYMPHOCYTIC LEUKAEMIA
     Route: 048
     Dates: start: 201401
  7. COCONUT OIL [Concomitant]
     Active Substance: COCONUT OIL
  8. MELATONIN [Concomitant]
     Active Substance: MELATONIN
     Dosage: QHS
  9. CLARITIN [Concomitant]
     Active Substance: LORATADINE
  10. ALAVERT ALLERGY [Concomitant]
     Active Substance: LORATADINE
  11. FISH OIL [Concomitant]
     Active Substance: FISH OIL

REACTIONS (4)
  - Visual impairment [Not Recovered/Not Resolved]
  - Fibromyalgia [Not Recovered/Not Resolved]
  - Photophobia [Not Recovered/Not Resolved]
  - Dyspepsia [Not Recovered/Not Resolved]

NARRATIVE: CASE EVENT DATE: 201507
